FAERS Safety Report 7295001-2 (Version None)
Quarter: 2011Q1

REPORT INFORMATION
  Report Type: 
  Country: None (occurrence: None)
  Receive Date: 20110216
  Receipt Date: 20110210
  Transmission Date: 20110831
  Serious: Yes (Hospitalization, Other)
  Sender: FDA-Public Use
  Company Number: DE-BRISTOL-MYERS SQUIBB COMPANY-15477607

PATIENT
  Age: 22 Year
  Sex: Female
  Weight: 50 kg

DRUGS (2)
  1. ABILIFY [Suspect]
     Indication: DEPRESSION
     Dosage: 42TABS IN TOTAL 420MG
  2. VENLAFAXINE HCL [Suspect]
     Indication: DEPRESSION
     Dosage: 30TABS IN TOTAL 4500MG,80TABS VENLAFAXINE 150(IN TOTAL 12000MG) ON 8JAN11,75MG

REACTIONS (7)
  - SUICIDE ATTEMPT [None]
  - FATIGUE [None]
  - INTENTIONAL OVERDOSE [None]
  - RHABDOMYOLYSIS [None]
  - SOMNOLENCE [None]
  - PNEUMOTHORAX [None]
  - TACHYCARDIA [None]
